FAERS Safety Report 8553239-8 (Version None)
Quarter: 2012Q3

REPORT INFORMATION
  Report Type: 
  Country: None (occurrence: None)
  Receive Date: 20120731
  Receipt Date: 20120723
  Transmission Date: 20120928
  Serious: Yes (Hospitalization, Other)
  Sender: FDA-Public Use
  Company Number: US-BAYER-2012-074516

PATIENT
  Age: 20 Year
  Sex: Female

DRUGS (1)
  1. MIRENA [Suspect]
     Indication: CONTRACEPTION
     Dosage: 20 MCG/24HR, CONT
     Route: 015
     Dates: start: 20110105, end: 20120420

REACTIONS (5)
  - AMNIORRHOEA [None]
  - ABORTION SPONTANEOUS [None]
  - SMALL SIZE PLACENTA [None]
  - POSTPARTUM DEPRESSION [None]
  - PREGNANCY WITH CONTRACEPTIVE DEVICE [None]
